FAERS Safety Report 6239942-3 (Version None)
Quarter: 2009Q2

REPORT INFORMATION
  Report Type: 
  Country: None (occurrence: None)
  Receive Date: 20090619
  Receipt Date: 20090608
  Transmission Date: 20091009
  Serious: Yes (Hospitalization, Disabling, Other)
  Sender: FDA-Public Use
  Company Number: TPA2009A01370

PATIENT
  Age: 61 Year
  Sex: Female
  Weight: 99.7913 kg

DRUGS (16)
  1. ACTOS [Suspect]
     Indication: TYPE 2 DIABETES MELLITUS
     Dosage: 45 MG, 1 IN 1 D, PER ORAL
     Route: 048
     Dates: start: 19990101, end: 20090501
  2. CALCIUM (CALCIUM) [Suspect]
     Indication: OSTEOPOROSIS PROPHYLAXIS
     Dosage: 1000 MG, 1 IN 1 D, PER ORAL
     Route: 048
     Dates: end: 20080101
  3. HUMALOG [Concomitant]
  4. LEVEMIR [Concomitant]
  5. ACCUPRIL [Concomitant]
  6. PRAVASTATIN [Concomitant]
  7. ZOLOFT [Concomitant]
  8. ASCORBIC ACID [Concomitant]
  9. ECHINACEA (ALL OTHER THERAPEUTIC PRODUCTS) [Concomitant]
  10. MAGNESIUM SULFATE [Concomitant]
  11. POTASSIUM CHLORIDE [Concomitant]
  12. VITAMIN D [Concomitant]
  13. ASPIRIN [Concomitant]
  14. TRAZODONE HCL [Concomitant]
  15. PROZAC [Concomitant]
  16. LIPITOR [Concomitant]

REACTIONS (17)
  - ANKLE FRACTURE [None]
  - ASTHENIA [None]
  - BRONCHITIS [None]
  - CLAVICLE FRACTURE [None]
  - FALL [None]
  - FATIGUE [None]
  - HEPATIC ENZYME INCREASED [None]
  - LOWER LIMB FRACTURE [None]
  - MOTOR DYSFUNCTION [None]
  - NASOPHARYNGITIS [None]
  - NAUSEA [None]
  - NERVE INJURY [None]
  - SLEEP DISORDER [None]
  - UPPER LIMB FRACTURE [None]
  - VOMITING [None]
  - WEIGHT LOSS POOR [None]
  - WRIST FRACTURE [None]
